FAERS Safety Report 21590699 (Version 1)
Quarter: 2022Q4

REPORT INFORMATION
  Report Type: Spontaneous
  Country: US (occurrence: US)
  Receive Date: 20221114
  Receipt Date: 20221114
  Transmission Date: 20230112
  Serious: Yes (Other)
  Sender: FDA-Public Use
  Company Number: US-BIOVITRUM-2022US06077

PATIENT
  Age: 53 Year
  Sex: Female

DRUGS (2)
  1. KINERET [Suspect]
     Active Substance: ANAKINRA
     Indication: Immunodeficiency common variable
  2. KINERET [Suspect]
     Active Substance: ANAKINRA
     Dates: start: 20220414

REACTIONS (10)
  - Immunodeficiency common variable [Not Recovered/Not Resolved]
  - Condition aggravated [Not Recovered/Not Resolved]
  - Vestibular migraine [Unknown]
  - Head discomfort [Unknown]
  - Dizziness [Unknown]
  - Nausea [Unknown]
  - Pain [Not Recovered/Not Resolved]
  - Migraine [Unknown]
  - Drug intolerance [Unknown]
  - Off label use [Unknown]

NARRATIVE: CASE EVENT DATE: 20220414
